FAERS Safety Report 8155095-9 (Version None)
Quarter: 2012Q1

REPORT INFORMATION
  Report Type: 
  Country: None (occurrence: None)
  Receive Date: 20120221
  Receipt Date: 20120215
  Transmission Date: 20120608
  Serious: Yes (Other)
  Sender: FDA-Public Use
  Company Number: US-PFIZER INC-2012041519

PATIENT
  Sex: Female
  Weight: 81 kg

DRUGS (4)
  1. ALPRAZOLAM [Suspect]
     Indication: ANXIETY DISORDER
     Dosage: 0.25 MG, 6X/DAY
     Route: 048
  2. ALPRAZOLAM [Suspect]
     Dosage: UNK
     Route: 048
     Dates: end: 20120201
  3. ALPRAZOLAM [Suspect]
     Dosage: UNK
     Route: 048
  4. ALPRAZOLAM [Suspect]
     Dosage: 0.25 MG, 6X/DAY
     Route: 048

REACTIONS (10)
  - POLLAKIURIA [None]
  - URINARY TRACT INFECTION [None]
  - FIBROMYALGIA [None]
  - HEART RATE INCREASED [None]
  - VULVOVAGINAL DRYNESS [None]
  - DRUG INEFFECTIVE [None]
  - HYPERTHYROIDISM [None]
  - FATIGUE [None]
  - FEELING ABNORMAL [None]
  - DRY SKIN [None]
